FAERS Safety Report 6393209-1 (Version None)
Quarter: 2009Q4

REPORT INFORMATION
  Report Type: 
  Country: None (occurrence: None)
  Receive Date: 20091008
  Receipt Date: 20091005
  Transmission Date: 20100525
  Serious: Yes (Hospitalization)
  Sender: FDA-Public Use
  Company Number: AT-BRISTOL-MYERS SQUIBB COMPANY-14800684

PATIENT
  Age: 52 Year
  Sex: Male

DRUGS (5)
  1. ABILIFY [Suspect]
     Indication: SCHIZOAFFECTIVE DISORDER
     Dosage: INITIATED AT 5MG/D, INCREASED TO 10MG/D ON 9FEB09
     Route: 048
     Dates: start: 20090204, end: 20090212
  2. TEMESTA [Suspect]
     Indication: SCHIZOAFFECTIVE DISORDER
     Dosage: 3.75MG;16JAN9,29JA-4,11,18FE9, 6.75MG;17-19JA9, 5MG;20-28J9,12-17FE9 2.5MG;5-10FEB9 3MG;19F-7MA9
     Route: 048
     Dates: start: 20090116
  3. ZYPREXA [Concomitant]
     Dosage: 30MG;22JAN09-11FEB09 40MG;12FEB09-29MAR09
     Dates: start: 20090122, end: 20090329
  4. CIPRALEX [Concomitant]
     Dosage: 10MG;22JAN09-1FEB09 20MG;2FEB09-17MAR09
     Dates: start: 20090122, end: 20090317
  5. DOMINAL [Concomitant]
     Dosage: DOMINAL F 160MG;30JAN09-3FEB09 240MG;4FEB09-15MAR09
     Dates: start: 20090130, end: 20090315

REACTIONS (1)
  - PSYCHOTIC DISORDER [None]
